FAERS Safety Report 17114715 (Version 1)
Quarter: 2019Q4

REPORT INFORMATION
  Report Type: Spontaneous
  Country: SE (occurrence: SE)
  Receive Date: 20191205
  Receipt Date: 20191205
  Transmission Date: 20200122
  Serious: Yes (Disabling)
  Sender: FDA-Public Use
  Company Number: SE-ACCORD-163357

PATIENT
  Age: 69 Year
  Sex: Female

DRUGS (9)
  1. IRINOTECAN [Suspect]
     Active Substance: IRINOTECAN
     Indication: PRODUCT USED FOR UNKNOWN INDICATION
     Route: 042
     Dates: start: 20190411, end: 20190531
  2. EZETIMIBE. [Concomitant]
     Active Substance: EZETIMIBE
  3. OMEPRAZOLE. [Concomitant]
     Active Substance: OMEPRAZOLE
  4. AMLODIPINE [Concomitant]
     Active Substance: AMLODIPINE BESYLATE
  5. FLUOROURACIL. [Suspect]
     Active Substance: FLUOROURACIL
     Indication: COLON CANCER METASTATIC
     Route: 042
     Dates: start: 20180829, end: 20190531
  6. LOSARTAN. [Concomitant]
     Active Substance: LOSARTAN
  7. ATORVASTATIN [Concomitant]
     Active Substance: ATORVASTATIN
  8. LEVAXIN [Concomitant]
     Active Substance: LEVOTHYROXINE SODIUM
  9. OXALIPLATIN. [Concomitant]
     Active Substance: OXALIPLATIN
     Dates: start: 201806

REACTIONS (1)
  - Arterial insufficiency [Not Recovered/Not Resolved]

NARRATIVE: CASE EVENT DATE: 20190819
